FAERS Safety Report 16955564 (Version 1)
Quarter: 2019Q4

REPORT INFORMATION
  Report Type: Spontaneous
  Country: ES (occurrence: ES)
  Receive Date: 20191024
  Receipt Date: 20191024
  Transmission Date: 20200122
  Serious: Yes (Other)
  Sender: FDA-Public Use
  Company Number: ES-ACCORD-158569

PATIENT
  Age: 53 Year

DRUGS (1)
  1. TACROLIMUS. [Suspect]
     Active Substance: TACROLIMUS
     Indication: IMMUNOSUPPRESSANT DRUG THERAPY

REACTIONS (7)
  - Diarrhoea [Unknown]
  - Erythema [Unknown]
  - Dysphagia [Unknown]
  - Abdominal pain [Unknown]
  - Nausea [Unknown]
  - Transplantation associated food allergy [Unknown]
  - Vomiting [Unknown]
